FAERS Safety Report 4496930-5 (Version None)
Quarter: 2004Q3

REPORT INFORMATION
  Report Type: 
  Country: None (occurrence: None)
  Receive Date: 20040928
  Receipt Date: 20040722
  Transmission Date: 20050211
  Serious: No
  Sender: FDA-Public Use
  Company Number: 04P-163-0267781-00

PATIENT
  Age: 62 Year
  Sex: Male
  Weight: 88.4514 kg

DRUGS (4)
  1. HUMIRA [Suspect]
     Indication: RHEUMATOID ARTHRITIS
     Dosage: 40 MG, 1 IN 2 WK, SUBCUTANEOUS
     Route: 058
     Dates: start: 20040301
  2. METHOTREXATE SODIUM [Concomitant]
  3. ATORVASTATIN CALCIUM [Concomitant]
  4. AMLODIPINE BESYLATE [Concomitant]

REACTIONS (2)
  - ARTHRALGIA [None]
  - MUSCLE FATIGUE [None]
